FAERS Safety Report 5303482-6 (Version None)
Quarter: 2007Q2

REPORT INFORMATION
  Report Type: 
  Country: None (occurrence: None)
  Receive Date: 20070420
  Receipt Date: 20070410
  Transmission Date: 20071010
  Serious: Yes (Hospitalization)
  Sender: FDA-Public Use
  Company Number: CA-ABBOTT-07P-028-0364334-00

PATIENT
  Sex: Male

DRUGS (2)
  1. KALETRA [Suspect]
     Indication: HIV INFECTION
     Route: 048
     Dates: start: 20070220, end: 20070308
  2. KALETRA [Suspect]
     Dates: start: 20070312, end: 20070403

REACTIONS (6)
  - DYSPHAGIA [None]
  - OESOPHAGEAL CANDIDIASIS [None]
  - ORAL INTAKE REDUCED [None]
  - PNEUMOCYSTIS JIROVECI PNEUMONIA [None]
  - PNEUMONIA [None]
  - RENAL FAILURE ACUTE [None]
